FAERS Safety Report 10167655 (Version 1)
Quarter: 2014Q2

REPORT INFORMATION
  Report Type: Report from Study
  Country: DE (occurrence: DE)
  Receive Date: 20140512
  Receipt Date: 20140512
  Transmission Date: 20141212
  Serious: Yes (Hospitalization)
  Sender: FDA-Public Use
  Company Number: DE-NAPPMUNDI-DEU-2014-0014372

PATIENT
  Sex: Male
  Weight: 60 kg

DRUGS (16)
  1. TARGIN  RETARDTABLETTEN [Suspect]
     Indication: CHRONIC OBSTRUCTIVE PULMONARY DISEASE
     Dosage: UNK
     Route: 048
     Dates: start: 20130607, end: 20130906
  2. OXYGESIC [Suspect]
     Indication: CHRONIC OBSTRUCTIVE PULMONARY DISEASE
     Dosage: 40 MG, DAILY
     Route: 048
     Dates: start: 20130906
  3. AMOXICILLIN [Concomitant]
     Indication: CONDITION AGGRAVATED
     Dosage: 1000 MG, TID
     Dates: start: 20131014
  4. ASS AL [Concomitant]
     Indication: ATRIAL FIBRILLATION
     Dosage: 100 MG, DAILY
     Dates: start: 20091202
  5. DAXAS [Concomitant]
     Indication: CHRONIC OBSTRUCTIVE PULMONARY DISEASE
     Dosage: 500 MCG, BID
     Dates: start: 20111215, end: 20131010
  6. FOSTER                             /06206901/ [Concomitant]
     Indication: CHRONIC OBSTRUCTIVE PULMONARY DISEASE
     Dosage: UNK MCG, DAILY
     Route: 055
     Dates: start: 20130812
  7. FUROSEMID                          /00032601/ [Concomitant]
     Indication: CARDIAC FAILURE
     Dosage: 40 MG, DAILY
     Dates: start: 20081030
  8. GASTROSIL                          /00041901/ [Concomitant]
     Indication: DYSPEPSIA
     Dosage: 15 DROP, TID
     Dates: start: 20130912
  9. LISINOPRIL AL [Concomitant]
     Indication: CARDIAC FAILURE
     Dosage: 1 DF, SINGLE
     Dates: start: 20120723
  10. LISINOPRIL AL [Concomitant]
     Indication: HYPERTENSION
  11. OPIPRAMOL [Concomitant]
     Indication: DEPRESSION
     Dosage: 50 MG, BID
     Dates: start: 20131029
  12. PANTOPRAZOL AL [Concomitant]
     Indication: DYSPEPSIA
     Dosage: 40 MG, BID
     Dates: start: 20130204
  13. PREDNI-H-TABLINEN [Concomitant]
     Indication: CHRONIC OBSTRUCTIVE PULMONARY DISEASE
     Dosage: 5 MG, SINGLE
     Dates: start: 20111020
  14. PROMETHAZIN NEURAXPHARM [Concomitant]
     Indication: DEPRESSION
     Dosage: 10/10/0 MG
     Dates: start: 20131002
  15. SEEBRI BREEZHALER [Concomitant]
     Indication: CHRONIC OBSTRUCTIVE PULMONARY DISEASE
     Dosage: UNK
     Dates: start: 20130129
  16. VERAPAMIL AL [Concomitant]
     Indication: HYPERTENSION
     Dosage: 80 MG, SINGLE
     Dates: start: 20080617

REACTIONS (5)
  - Aortic stenosis [Unknown]
  - Rectal tenesmus [Recovered/Resolved]
  - Constipation [Recovered/Resolved]
  - Abdominal distension [Recovered/Resolved]
  - Haematoma [Recovered/Resolved]
